FAERS Safety Report 9517131 (Version 1)
Quarter: 2013Q3

REPORT INFORMATION
  Report Type: Spontaneous
  Country: US (occurrence: US)
  Receive Date: 20130911
  Receipt Date: 20130911
  Transmission Date: 20140515
  Serious: No
  Sender: FDA-Public Use
  Company Number: US-ASTRAZENECA-2013SE52564

PATIENT
  Age: 44 Year
  Sex: Female
  Weight: 63.5 kg

DRUGS (3)
  1. SYMBICORT [Suspect]
     Indication: ASTHMA
     Dosage: 80/4.5MCG, 2 PUFFS BID
     Route: 055
  2. CELEXA [Interacting]
     Route: 065
  3. FLUOXETINE [Interacting]
     Route: 065

REACTIONS (3)
  - Drug interaction [Unknown]
  - Obstructive airways disorder [Unknown]
  - Throat tightness [Unknown]
